FAERS Safety Report 9733183 (Version 2)
Quarter: 2014Q1

REPORT INFORMATION
  Report Type: Spontaneous
  Country: DE (occurrence: DE)
  Receive Date: 20131205
  Receipt Date: 20140117
  Transmission Date: 20141002
  Serious: Yes (Hospitalization)
  Sender: FDA-Public Use
  Company Number: DE-JNJFOC-20131118525

PATIENT
  Sex: Male
  Weight: 121 kg

DRUGS (8)
  1. REMICADE [Suspect]
     Indication: PSORIASIS
     Route: 042
     Dates: start: 200806
  2. REMICADE [Suspect]
     Indication: PSORIASIS
     Route: 042
     Dates: start: 200706
  3. CODIOVAN [Concomitant]
     Dosage: 80MG/12.5MG
     Route: 065
  4. ALLOPURINOL [Concomitant]
     Route: 065
  5. METFORMIN [Concomitant]
     Route: 065
  6. INSULIN [Concomitant]
     Dosage: AT THE EVENING
     Route: 065
  7. HUMALOG INSULIN [Concomitant]
     Dosage: 18-18-24-0
     Route: 065
  8. METHOTREXATE [Concomitant]
     Route: 065

REACTIONS (10)
  - Diastolic dysfunction [Recovered/Resolved]
  - Deep vein thrombosis [Recovered/Resolved]
  - Pulmonary embolism [Recovered/Resolved]
  - Gastritis [Recovered/Resolved]
  - Dyspnoea [Recovered/Resolved]
  - Bronchitis [Recovered/Resolved]
  - Hiatus hernia [Unknown]
  - Psoriasis [Unknown]
  - Drug ineffective [Unknown]
  - Back pain [Recovered/Resolved]
